FAERS Safety Report 9734695 (Version 1)
Quarter: 2013Q4

REPORT INFORMATION
  Report Type: Spontaneous
  Country: US (occurrence: None)
  Receive Date: 20131204
  Receipt Date: 20131204
  Transmission Date: 20140711
  Serious: Yes (Hospitalization)
  Sender: FDA-Public Use
  Company Number: None

PATIENT
  Age: 68 Year
  Sex: Male
  Weight: 104.4 kg

DRUGS (2)
  1. METOPROLOL [Suspect]
     Indication: ATRIAL FIBRILLATION
     Route: 048
     Dates: start: 20100517, end: 20131002
  2. DILTIAZEM [Suspect]
     Indication: ATRIAL FIBRILLATION
     Route: 048
     Dates: start: 20061215, end: 20131002

REACTIONS (4)
  - Dizziness [None]
  - Nausea [None]
  - Bradycardia [None]
  - Vomiting [None]
